FAERS Safety Report 4910254-0 (Version None)
Quarter: 2006Q1

REPORT INFORMATION
  Report Type: 
  Country: None (occurrence: None)
  Receive Date: 20060209
  Receipt Date: 20060203
  Transmission Date: 20060701
  Serious: Yes (Hospitalization, Disabling)
  Sender: FDA-Public Use
  Company Number: 2006-BP-01388RO

PATIENT
  Age: 49 Year
  Sex: Male

DRUGS (1)
  1. MORPHINE [Suspect]
     Indication: PAIN
     Dosage: 3.2 MG/DAY VIA IT PUMP , IT
     Route: 037

REACTIONS (4)
  - MYELITIS TRANSVERSE [None]
  - MYELOPATHY [None]
  - NECROSIS [None]
  - PARAPLEGIA [None]
